FAERS Safety Report 16613825 (Version 1)
Quarter: 2019Q3

REPORT INFORMATION
  Report Type: Spontaneous
  Country: US (occurrence: US)
  Receive Date: 20190723
  Receipt Date: 20190723
  Transmission Date: 20191004
  Serious: Yes (Other)
  Sender: FDA-Public Use
  Company Number: US-BAXTER-2019BAX014071

PATIENT
  Age: 118 Month
  Sex: Female

DRUGS (4)
  1. FLUTICASONE PROPIONATE. [Suspect]
     Active Substance: FLUTICASONE PROPIONATE
     Indication: MENINGITIS COCCIDIOIDES
     Route: 055
  2. FLUCONAZOLE INJECTION, USP [Suspect]
     Active Substance: FLUCONAZOLE
     Indication: RESPIRATORY DISORDER
  3. FLUCONAZOLE INJECTION, USP [Suspect]
     Active Substance: FLUCONAZOLE
     Indication: MENINGITIS COCCIDIOIDES
     Route: 065
  4. FLUTICASONE PROPIONATE. [Suspect]
     Active Substance: FLUTICASONE PROPIONATE
     Indication: RESPIRATORY DISORDER

REACTIONS (6)
  - Drug interaction [Recovered/Resolved]
  - Growth failure [Recovered/Resolved]
  - Bone density decreased [Recovered/Resolved]
  - Adrenal insufficiency [Recovered/Resolved]
  - Cushingoid [Recovered/Resolved]
  - Femur fracture [Unknown]
